FAERS Safety Report 9474648 (Version 1)
Quarter: 2013Q3

REPORT INFORMATION
  Report Type: Report from Study
  Country: DE (occurrence: DE)
  Receive Date: 20130823
  Receipt Date: 20130823
  Transmission Date: 20140515
  Serious: Yes (Hospitalization)
  Sender: FDA-Public Use
  Company Number: DE-ROCHE-1265313

PATIENT
  Sex: Male

DRUGS (6)
  1. RITUXIMAB [Suspect]
     Indication: RHEUMATOID ARTHRITIS
     Route: 065
     Dates: start: 20080916
  2. RITUXIMAB [Suspect]
     Route: 065
     Dates: start: 20090414
  3. RITUXIMAB [Suspect]
     Route: 065
     Dates: start: 20091103
  4. RITUXIMAB [Suspect]
     Route: 065
     Dates: start: 20100914
  5. RITUXIMAB [Suspect]
     Route: 065
     Dates: start: 20110119
  6. METHOTREXATE [Suspect]
     Indication: RHEUMATOID ARTHRITIS
     Route: 065
     Dates: start: 200510

REACTIONS (1)
  - Dementia [Unknown]
